FAERS Safety Report 10144870 (Version 1)
Quarter: 2014Q2

REPORT INFORMATION
  Report Type: Spontaneous
  Country: US (occurrence: US)
  Receive Date: 20140430
  Receipt Date: 20140430
  Transmission Date: 20141212
  Serious: Yes (Other)
  Sender: FDA-Public Use
  Company Number: US-SANOFI-AVENTIS-2013SA074769

PATIENT
  Age: 57 Year
  Sex: Female

DRUGS (13)
  1. DEMEROL [Suspect]
     Route: 065
  2. CODEINE [Suspect]
     Route: 065
  3. VISTARIL [Suspect]
     Route: 065
  4. TETRACYCLINE HYDROCHLORIDE [Suspect]
     Route: 065
  5. PSEUDOEPHEDRINE HYDROCHLORIDE [Suspect]
     Route: 065
  6. REGLAN [Suspect]
     Route: 065
  7. COMPAZINE [Suspect]
     Route: 065
  8. IRON [Suspect]
     Route: 065
  9. DURAGESIC [Suspect]
     Route: 065
  10. WYGESIC [Suspect]
     Route: 065
  11. ZOFRAN [Suspect]
     Route: 065
  12. PHENERGAN [Suspect]
     Route: 065
  13. TIGAN [Suspect]
     Route: 065

REACTIONS (2)
  - Anaphylactic reaction [Unknown]
  - Drug hypersensitivity [Unknown]
